FAERS Safety Report 10962669 (Version 2)
Quarter: 2015Q2

REPORT INFORMATION
  Report Type: Spontaneous
  Country: US (occurrence: US)
  Receive Date: 20150327
  Receipt Date: 20150401
  Transmission Date: 20150821
  Serious: No
  Sender: FDA-Public Use
  Company Number: US-TEVA-551269USA

PATIENT
  Age: 21 Year
  Sex: Female

DRUGS (1)
  1. PLAN B ONE-STEP [Suspect]
     Active Substance: LEVONORGESTREL
     Indication: POST COITAL CONTRACEPTION
     Dosage: 1.5 MILLIGRAM DAILY;
     Route: 048
     Dates: start: 20150322, end: 20150322

REACTIONS (2)
  - Vaginal haemorrhage [Not Recovered/Not Resolved]
  - Vaginal discharge [Recovered/Resolved]

NARRATIVE: CASE EVENT DATE: 20150325
